FAERS Safety Report 18264350 (Version 2)
Quarter: 2020Q3

REPORT INFORMATION
  Report Type: Spontaneous
  Country: US (occurrence: US)
  Receive Date: 20200914
  Receipt Date: 20200925
  Transmission Date: 20201103
  Serious: No
  Sender: FDA-Public Use
  Company Number: US-PFIZER INC-2020352304

PATIENT
  Age: 67 Year
  Sex: Male
  Weight: 66 kg

DRUGS (22)
  1. ZOFRAN [Concomitant]
     Active Substance: ONDANSETRON HYDROCHLORIDE
     Indication: NAUSEA
     Dosage: UNK
     Dates: start: 20200823
  2. ZOFRAN [Concomitant]
     Active Substance: ONDANSETRON HYDROCHLORIDE
     Indication: VOMITING
  3. COMPAZINE [Concomitant]
     Active Substance: PROCHLORPERAZINE MALEATE
     Indication: VOMITING
  4. GABAPENTIN. [Concomitant]
     Active Substance: GABAPENTIN
     Dosage: UNK
  5. IMODIUM [Concomitant]
     Active Substance: LOPERAMIDE HYDROCHLORIDE
     Indication: DIARRHOEA
  6. CEFEPIME [Concomitant]
     Active Substance: CEFEPIME HYDROCHLORIDE
     Dosage: UNK
     Dates: start: 20200827, end: 20200830
  7. IMODIUM [Concomitant]
     Active Substance: LOPERAMIDE HYDROCHLORIDE
     Indication: NAUSEA
     Dosage: UNK
     Dates: start: 20200823
  8. AVELUMAB [Concomitant]
     Active Substance: AVELUMAB
     Dosage: 800 MG, CYCLIC (EVERY 2 WEEKS)
     Route: 042
  9. AVELUMAB [Concomitant]
     Active Substance: AVELUMAB
     Dosage: 800 MG, CYCLIC (EVERY 2 WEEKS)
     Route: 042
     Dates: end: 20200818
  10. IMODIUM [Concomitant]
     Active Substance: LOPERAMIDE HYDROCHLORIDE
     Indication: VOMITING
  11. AZITHROMYCIN ANHYDROUS. [Suspect]
     Active Substance: AZITHROMYCIN ANHYDROUS
     Indication: PNEUMONIA
     Dosage: UNK
     Dates: start: 20200828, end: 20200830
  12. MSC 2490484A [Concomitant]
     Indication: PROSTATE CANCER
     Dosage: 300 MG, 2X/DAY
     Route: 048
     Dates: start: 20200818, end: 20200825
  13. COMPAZINE [Concomitant]
     Active Substance: PROCHLORPERAZINE MALEATE
     Indication: NAUSEA
     Dosage: UNK
     Dates: start: 20200823
  14. COMPAZINE [Concomitant]
     Active Substance: PROCHLORPERAZINE MALEATE
     Indication: DIARRHOEA
  15. ATIVAN [Concomitant]
     Active Substance: LORAZEPAM
     Dosage: UNK
     Dates: start: 20200824
  16. METHADONE [Concomitant]
     Active Substance: METHADONE HYDROCHLORIDE
     Dosage: UNK
  17. VANCOMYCIN HCL [Suspect]
     Active Substance: VANCOMYCIN HYDROCHLORIDE
     Indication: PNEUMONIA
     Dosage: UNK
     Dates: start: 20200827, end: 20200830
  18. AVELUMAB [Concomitant]
     Active Substance: AVELUMAB
     Indication: PROSTATE CANCER
     Dosage: 800 MG, CYCLIC (EVERY 2 WEEKS)
     Route: 042
  19. AVELUMAB [Concomitant]
     Active Substance: AVELUMAB
     Dosage: 800 MG, CYCLIC (EVERY 2 WEEKS)
     Route: 042
     Dates: start: 20200818
  20. ROCEPHIN [Concomitant]
     Active Substance: CEFTRIAXONE SODIUM
     Dosage: UNK
     Dates: start: 20200829
  21. AVELUMAB [Concomitant]
     Active Substance: AVELUMAB
     Dosage: 800 MG, CYCLIC (EVERY 2 WEEKS)
     Route: 042
  22. ZOFRAN [Concomitant]
     Active Substance: ONDANSETRON HYDROCHLORIDE
     Indication: DIARRHOEA

REACTIONS (1)
  - Gastrointestinal hypomotility [Unknown]

NARRATIVE: CASE EVENT DATE: 202008
